FAERS Safety Report 7315923-3 (Version None)
Quarter: 2011Q1

REPORT INFORMATION
  Report Type: 
  Country: None (occurrence: None)
  Receive Date: 20110217
  Receipt Date: 20110217
  Transmission Date: 20110831
  Serious: Yes (Other)
  Sender: FDA-Public Use
  Company Number: None

PATIENT
  Age: 37 Year
  Sex: Male
  Weight: 136.08 kg

DRUGS (1)
  1. PENICILLIN [Suspect]
     Indication: INFECTION

REACTIONS (2)
  - LOSS OF CONSCIOUSNESS [None]
  - GAIT DISTURBANCE [None]
